FAERS Safety Report 8341533-5 (Version None)
Quarter: 2012Q2

REPORT INFORMATION
  Report Type: 
  Country: None (occurrence: None)
  Receive Date: 20120507
  Receipt Date: 20120426
  Transmission Date: 20120825
  Serious: Yes (Other)
  Sender: FDA-Public Use
  Company Number: US-ASTRAZENECA-2010SE38854

PATIENT
  Age: 53 Year
  Sex: Female

DRUGS (4)
  1. EFFEXOR XR [Concomitant]
  2. ZOMIG-ZMT [Suspect]
     Route: 048
  3. ZOMIG-ZMT [Suspect]
     Dosage: ZOMIG
     Route: 048
  4. NEXIUM [Suspect]
     Route: 048

REACTIONS (9)
  - INTENTIONAL DRUG MISUSE [None]
  - CRANIOCEREBRAL INJURY [None]
  - ROAD TRAFFIC ACCIDENT [None]
  - SLEEP DISORDER [None]
  - NAUSEA [None]
  - DRUG INEFFECTIVE [None]
  - ADVERSE EVENT [None]
  - HEADACHE [None]
  - MIGRAINE [None]
